FAERS Safety Report 9877217 (Version 2)
Quarter: 2014Q1

REPORT INFORMATION
  Report Type: Spontaneous
  Country: DE (occurrence: DE)
  Receive Date: 20140206
  Receipt Date: 20140318
  Transmission Date: 20141002
  Serious: Yes (Hospitalization)
  Sender: FDA-Public Use
  Company Number: DE-SA-2014SA013105

PATIENT
  Sex: Male

DRUGS (2)
  1. ZALTRAP [Suspect]
     Indication: COLORECTAL CANCER
     Route: 065
  2. 5-FU [Suspect]
     Indication: COLORECTAL CANCER
     Route: 042

REACTIONS (2)
  - Colitis erosive [Recovered/Resolved]
  - Diarrhoea [Recovered/Resolved]
